FAERS Safety Report 24398788 (Version 1)
Quarter: 2024Q4

REPORT INFORMATION
  Report Type: Spontaneous
  Country: US (occurrence: US)
  Receive Date: 20241004
  Receipt Date: 20241004
  Transmission Date: 20250115
  Serious: Yes (Death, Hospitalization)
  Sender: JOHNSON AND JOHNSON
  Company Number: US-JNJFOC-20241008688

PATIENT
  Age: 41 Year
  Sex: Male

DRUGS (1)
  1. TYLENOL [Suspect]
     Active Substance: ACETAMINOPHEN
     Indication: Product used for unknown indication
     Dosage: 3-4 GM OF TYLENOL DAILY/CHRONIC USE
     Route: 048

REACTIONS (12)
  - Methaemoglobinaemia [Fatal]
  - Multiple organ dysfunction syndrome [Fatal]
  - Incorrect dose administered [Fatal]
  - Abdominal pain [Fatal]
  - Nausea [Fatal]
  - Vomiting [Fatal]
  - Diarrhoea [Fatal]
  - Aspartate aminotransferase increased [Fatal]
  - Alanine aminotransferase increased [Fatal]
  - Blood bilirubin increased [Fatal]
  - Blood creatinine increased [Fatal]
  - International normalised ratio increased [Fatal]
